FAERS Safety Report 12838089 (Version 1)
Quarter: 2016Q4

REPORT INFORMATION
  Report Type: Other
  Country: ES (occurrence: ES)
  Receive Date: 20161012
  Receipt Date: 20161012
  Transmission Date: 20170207
  Serious: Yes (Hospitalization)
  Sender: FDA-Public Use
  Company Number: ES-HETERO LABS LTD-1058243

PATIENT
  Age: 66 Year
  Sex: Male

DRUGS (5)
  1. LEVOFLOXACIN. [Suspect]
     Active Substance: LEVOFLOXACIN
     Indication: PNEUMONIA
  2. RITUXIMAB [Suspect]
     Active Substance: RITUXIMAB
  3. BENDAMUSTINE [Concomitant]
     Active Substance: BENDAMUSTINE
  4. CEFTAZIDIME. [Concomitant]
     Active Substance: CEFTAZIDIME
  5. IDELALISIB [Concomitant]
     Active Substance: IDELALISIB

REACTIONS (1)
  - Acute generalised exanthematous pustulosis [Recovered/Resolved]
